FAERS Safety Report 4546631-X (Version None)
Quarter: 2005Q1

REPORT INFORMATION
  Report Type: 
  Country: None (occurrence: None)
  Receive Date: 20050103
  Receipt Date: 20041216
  Transmission Date: 20050727
  Serious: Yes (Death, Other)
  Sender: FDA-Public Use
  Company Number: JP_041205467

PATIENT
  Age: 41 Year
  Sex: Female

DRUGS (14)
  1. VINCRISTINE SULFATE [Suspect]
     Indication: PERIPHERAL T-CELL LYMPHOMA UNSPECIFIED
     Dates: start: 19900801
  2. ADRIAMYCIN PFS [Concomitant]
  3. CYCLOPHOSPHAMIDE [Concomitant]
  4. PREDNISOLONE [Concomitant]
  5. MITOXANTRONE [Concomitant]
  6. ETOPOSIDE [Concomitant]
  7. VINDESINE [Concomitant]
  8. CISPLATIN [Concomitant]
  9. CARBOPLATIN [Concomitant]
  10. CYTARABINE [Concomitant]
  11. ENOCITABINE [Concomitant]
  12. RANIMUSTINE [Concomitant]
  13. PROCARBAZINE [Concomitant]
  14. BLEOMYCIN [Concomitant]

REACTIONS (13)
  - ACUTE MEGAKARYOCYTIC LEUKAEMIA [None]
  - ACUTE MYELOID LEUKAEMIA [None]
  - ANAEMIA [None]
  - BONE MARROW DEPRESSION [None]
  - CEREBELLAR TUMOUR [None]
  - CEREBRAL HAEMORRHAGE [None]
  - CHROMOSOME ABNORMALITY [None]
  - GINGIVAL BLEEDING [None]
  - HAEMORRHAGIC DIATHESIS [None]
  - HEADACHE [None]
  - MYELODYSPLASTIC SYNDROME [None]
  - PETECHIAE [None]
  - THROMBOCYTOPENIA [None]
